FAERS Safety Report 4448446-X (Version None)
Quarter: 2004Q3

REPORT INFORMATION
  Report Type: 
  Country: None (occurrence: None)
  Receive Date: 20040909
  Receipt Date: 20040825
  Transmission Date: 20050211
  Serious: No
  Sender: FDA-Public Use
  Company Number: 04P-229-0262378-00

PATIENT
  Sex: 0

DRUGS (2)
  1. EPILIM (SODIUM VALPROATE) (SODIUIM VALPROATE) [Suspect]
  2. OMEPRAZOLE [Suspect]

REACTIONS (4)
  - CONDITION AGGRAVATED [None]
  - CONVULSION [None]
  - DRUG INTERACTION [None]
  - TREATMENT NONCOMPLIANCE [None]
